FAERS Safety Report 8385133-X (Version None)
Quarter: 2012Q2

REPORT INFORMATION
  Report Type: 
  Country: None (occurrence: None)
  Receive Date: 20120524
  Receipt Date: 20120517
  Transmission Date: 20120825
  Serious: Yes (Other)
  Sender: FDA-Public Use
  Company Number: IT-BAXTER-2012BAX006675

PATIENT

DRUGS (7)
  1. ACYCLOVIR [Concomitant]
     Indication: PROPHYLAXIS
  2. RITUXIMAB [Suspect]
     Route: 042
  3. ACETAMINOPHEN [Concomitant]
     Indication: PROPHYLAXIS
  4. FLUDARABINE PHOSPHATE [Suspect]
     Route: 042
  5. TRIMETHOPRIM + SULFAMETHOXAZOLE [Concomitant]
     Indication: PROPHYLAXIS
  6. CYCLOPHOSPHAMIDE [Suspect]
     Route: 042
  7. DIPHENHYDRAMINE HCL [Concomitant]
     Indication: PROPHYLAXIS

REACTIONS (1)
  - PEMPHIGUS [None]
